FAERS Safety Report 13299376 (Version 1)
Quarter: 2017Q1

REPORT INFORMATION
  Report Type: Spontaneous
  Country: US (occurrence: US)
  Receive Date: 20170306
  Receipt Date: 20170306
  Transmission Date: 20170428
  Serious: Yes (Other)
  Sender: FDA-Public Use
  Company Number: US-B. BRAUN MEDICAL INC.-1063878

PATIENT
  Age: 1 Day
  Sex: Male
  Weight: 4.15 kg

DRUGS (1)
  1. DEXTROSE. [Suspect]
     Active Substance: DEXTROSE
     Route: 040

REACTIONS (1)
  - Hyperglycaemia [Unknown]
